FAERS Safety Report 11845667 (Version 2)
Quarter: 2015Q4

REPORT INFORMATION
  Report Type: Spontaneous
  Country: US (occurrence: US)
  Receive Date: 20151217
  Receipt Date: 20151229
  Transmission Date: 20160305
  Serious: Yes (Death, Hospitalization)
  Sender: FDA-Public Use
  Company Number: US-INSYS THERAPEUTICS, INC-INS201512-000528

PATIENT
  Sex: Female

DRUGS (10)
  1. DECADRON [Concomitant]
     Active Substance: DEXAMETHASONE
  2. GABAPENTIN. [Concomitant]
     Active Substance: GABAPENTIN
  3. DURAGESIC [Concomitant]
     Active Substance: FENTANYL
  4. TEMAZEPAM. [Concomitant]
     Active Substance: TEMAZEPAM
  5. TRAMADOL. [Concomitant]
     Active Substance: TRAMADOL
  6. MEGASE [Concomitant]
  7. XANAX [Concomitant]
     Active Substance: ALPRAZOLAM
  8. LEVOTHYROXINE SODIUM. [Concomitant]
     Active Substance: LEVOTHYROXINE SODIUM
  9. ZOFRAN [Concomitant]
     Active Substance: ONDANSETRON HYDROCHLORIDE
  10. SUBSYS [Suspect]
     Active Substance: FENTANYL
     Indication: BREAKTHROUGH PAIN
     Dates: start: 20150415

REACTIONS (1)
  - Hospitalisation [Unknown]
